FAERS Safety Report 12146243 (Version 1)
Quarter: 2016Q1

REPORT INFORMATION
  Report Type: Spontaneous
  Country: FR (occurrence: FR)
  Receive Date: 20160304
  Receipt Date: 20160304
  Transmission Date: 20160526
  Serious: Yes (Life-Threatening)
  Sender: FDA-Public Use
  Company Number: FR-IGI LABORATORIES, INC.-1048683

PATIENT
  Age: 74 Year
  Sex: Female

DRUGS (3)
  1. ZANTAC [Suspect]
     Active Substance: RANITIDINE HYDROCHLORIDE
     Indication: PREMEDICATION
     Route: 042
     Dates: start: 20151217, end: 20151224
  2. POLARAMINE [Suspect]
     Active Substance: DEXCHLORPHENIRAMINE MALEATE
     Route: 042
     Dates: start: 20151217, end: 20151224
  3. TAXOL [Concomitant]
     Active Substance: PACLITAXEL
     Route: 065
     Dates: start: 20151217

REACTIONS (4)
  - Hypotension [Recovered/Resolved]
  - Overdose [Unknown]
  - Bronchospasm [Recovered/Resolved]
  - Prescribed overdose [None]

NARRATIVE: CASE EVENT DATE: 20151217
